FAERS Safety Report 6696641-1 (Version None)
Quarter: 2010Q2

REPORT INFORMATION
  Report Type: 
  Country: None (occurrence: None)
  Receive Date: 20100426
  Receipt Date: 20100413
  Transmission Date: 20101027
  Serious: Yes (Hospitalization)
  Sender: FDA-Public Use
  Company Number: AU-SANOFI-AVENTIS-2010SA023764

PATIENT

DRUGS (3)
  1. FLUDARABINE PHOSPHATE [Suspect]
     Route: 048
  2. RITUXIMAB [Suspect]
     Route: 065
  3. RITUXIMAB [Suspect]
     Route: 065

REACTIONS (4)
  - ACUTE PULMONARY OEDEMA [None]
  - CHEST PAIN [None]
  - HAEMOPTYSIS [None]
  - MYOCARDIAL INFARCTION [None]
